FAERS Safety Report 6104064-9 (Version None)
Quarter: 2009Q1

REPORT INFORMATION
  Report Type: 
  Country: None (occurrence: None)
  Receive Date: 20090305
  Receipt Date: 20090223
  Transmission Date: 20090719
  Serious: Yes (Other)
  Sender: FDA-Public Use
  Company Number: DE-PFIZER INC-2008157064

PATIENT

DRUGS (2)
  1. SORTIS [Suspect]
     Indication: HYPERCHOLESTEROLAEMIA
     Dosage: 20MG DAILY
     Route: 048
     Dates: start: 20080701, end: 20081201
  2. ACETYLSALICYLIC ACID [Concomitant]
     Dosage: NOW AND AGAIN

REACTIONS (2)
  - PSORIASIS [None]
  - SKIN EXFOLIATION [None]
